FAERS Safety Report 15632924 (Version 1)
Quarter: 2018Q4

REPORT INFORMATION
  Report Type: Spontaneous
  Country: LB (occurrence: LB)
  Receive Date: 20181119
  Receipt Date: 20181119
  Transmission Date: 20190205
  Serious: Yes (Other)
  Sender: FDA-Public Use
  Company Number: None

PATIENT
  Age: 45 Year
  Sex: Female
  Weight: 69.75 kg

DRUGS (1)
  1. ARCOXIA [Suspect]
     Active Substance: ETORICOXIB
     Indication: BACK PAIN
     Route: 002
     Dates: start: 20181108, end: 20181114

REACTIONS (1)
  - Swelling face [None]

NARRATIVE: CASE EVENT DATE: 20181108
